FAERS Safety Report 21474353 (Version 1)
Quarter: 2022Q4

REPORT INFORMATION
  Report Type: Spontaneous
  Country: US (occurrence: US)
  Receive Date: 20221018
  Receipt Date: 20221018
  Transmission Date: 20230112
  Serious: No
  Sender: FDA-Public Use
  Company Number: US-009507513-2210USA001475

PATIENT

DRUGS (3)
  1. TICE BCG [Suspect]
     Active Substance: BACILLUS CALMETTE-GUERIN SUBSTRAIN TICE LIVE ANTIGEN
     Indication: Bladder cancer
     Dosage: 50 UNITS INTRAVESICAL ONCE A WEEK FOR 6 WEEKS
     Route: 043
     Dates: start: 20220908
  2. TICE BCG [Suspect]
     Active Substance: BACILLUS CALMETTE-GUERIN SUBSTRAIN TICE LIVE ANTIGEN
     Dosage: 50 UNITS INTRAVESICAL ONCE A WEEK FOR 6 WEEKS
     Route: 043
     Dates: start: 20220915
  3. TICE BCG [Suspect]
     Active Substance: BACILLUS CALMETTE-GUERIN SUBSTRAIN TICE LIVE ANTIGEN
     Dosage: 50 UNITS INTRAVESICAL ONCE A WEEK FOR 6 WEEKS
     Route: 043
     Dates: start: 20220922

REACTIONS (2)
  - Accidental underdose [Unknown]
  - No adverse event [Unknown]

NARRATIVE: CASE EVENT DATE: 20220915
